FAERS Safety Report 6184112 (Version 2)
Quarter: 2015Q1

REPORT INFORMATION
  Report Type: Spontaneous
  Country: US (occurrence: US)
  Receive Date: 20061213
  Receipt Date: 20150219
  Transmission Date: 20150721
  Serious: Yes (Hospitalization, Congenital Anomaly, Other)
  Sender: FDA-Public Use
  Company Number: US-GLAXOSMITHKLINE-A0630783B

PATIENT
  Age: 0 Day
  Sex: Female

DRUGS (4)
  1. ZOFRAN [Suspect]
     Active Substance: ONDANSETRON HYDROCHLORIDE
     Indication: HYPEREMESIS GRAVIDARUM
     Route: 064
  2. TUMS [Concomitant]
     Active Substance: CALCIUM CARBONATE
     Route: 064
  3. PHENERGAN [Concomitant]
     Active Substance: PROMETHAZINE HYDROCHLORIDE
     Route: 064
  4. FLINTSTONES MULTI VITAMIN [Concomitant]
     Route: 064

REACTIONS (4)
  - Aplasia cutis congenita [Unknown]
  - Foetal exposure during pregnancy [Unknown]
  - Alopecia [Unknown]
  - Thrombocytosis [Unknown]

NARRATIVE: CASE EVENT DATE: 20041217
